FAERS Safety Report 7169959 (Version 3)
Quarter: 2014Q3

REPORT INFORMATION
  Report Type: Spontaneous
  Country: US (occurrence: None)
  Receive Date: 20091026
  Receipt Date: 20140926
  Transmission Date: 20150326
  Serious: Yes (Hospitalization, Other)
  Sender: FDA-Public Use
  Company Number: 2009S1007849

PATIENT
  Age: 34 Year
  Sex: Male

DRUGS (8)
  1. PHOSPHO-SODA [Suspect]
     Active Substance: SODIUM PHOSPHATE, DIBASIC\SODIUM PHOSPHATE, MONOBASIC
     Indication: ENDOSCOPY
     Dosage: 90 ML; TOTAL; PO
     Route: 048
     Dates: start: 20021119, end: 20021119
  2. ALTACE (RAMIPRIL) [Concomitant]
  3. PHOSPHO-SODA [Suspect]
     Active Substance: SODIUM PHOSPHATE, DIBASIC\SODIUM PHOSPHATE, MONOBASIC
     Indication: COLONOSCOPY
     Dosage: 90 ML; TOTAL; PO
     Route: 048
     Dates: start: 20021119, end: 20021119
  4. XANAX [Concomitant]
     Active Substance: ALPRAZOLAM
  5. LORTAB (PARACETAMOL, HYDROCODONE BITARTRATE) [Concomitant]
  6. HYDROCHLOROTHIAZIDE. [Concomitant]
     Active Substance: HYDROCHLOROTHIAZIDE
  7. LIPITOR [Concomitant]
     Active Substance: ATORVASTATIN CALCIUM
  8. HUMULIN (INSULIN HUMAN, INSULIN HUMAN INJECTION, ISOPHANE) [Concomitant]

REACTIONS (20)
  - Toxicity to various agents [None]
  - Dehydration [None]
  - Hyperkalaemia [None]
  - Renal failure chronic [None]
  - Dialysis [None]
  - Oropharyngeal pain [None]
  - Nausea [None]
  - Kidney transplant rejection [None]
  - Nephrogenic anaemia [None]
  - Intercapillary glomerulosclerosis [None]
  - Renal transplant [None]
  - Fluid intake reduced [None]
  - Gastroenteritis viral [None]
  - Haemodialysis [None]
  - Hypophagia [None]
  - Vomiting [None]
  - Renal tubular necrosis [None]
  - Haemoglobin decreased [None]
  - Nephrocalcinosis [None]
  - Renal failure acute [None]

NARRATIVE: CASE EVENT DATE: 20021128
